FAERS Safety Report 11120664 (Version 6)
Quarter: 2015Q3

REPORT INFORMATION
  Report Type: Report from Study
  Country: KR (occurrence: KR)
  Receive Date: 20150519
  Receipt Date: 20150914
  Transmission Date: 20151125
  Serious: Yes (Other)
  Sender: FDA-Public Use
  Company Number: KR-BAYER-2015-093356

PATIENT
  Age: 57 Year
  Sex: Female

DRUGS (1)
  1. NEXAVAR [Suspect]
     Active Substance: SORAFENIB
     Indication: THYROID CANCER
     Dosage: 400 MG, BID
     Route: 048
     Dates: start: 20150320

REACTIONS (13)
  - Blister [Not Recovered/Not Resolved]
  - Drug ineffective [None]
  - Oral pain [Not Recovered/Not Resolved]
  - Stomatitis [Not Recovered/Not Resolved]
  - Mini-tracheostomy [None]
  - Erythema [Not Recovered/Not Resolved]
  - Diarrhoea [None]
  - Drug intolerance [None]
  - Haemoptysis [None]
  - Sputum retention [None]
  - Glossodynia [None]
  - Skin exfoliation [None]
  - Oral pain [Not Recovered/Not Resolved]

NARRATIVE: CASE EVENT DATE: 2015
